FAERS Safety Report 19275620 (Version 2)
Quarter: 2021Q3

REPORT INFORMATION
  Report Type: Spontaneous
  Country: FR (occurrence: FR)
  Receive Date: 20210519
  Receipt Date: 20210830
  Transmission Date: 20211014
  Serious: Yes (Other)
  Sender: FDA-Public Use
  Company Number: FR-ELI_LILLY_AND_COMPANY-FR202105007055

PATIENT
  Age: 29 Year
  Sex: Female

DRUGS (1)
  1. EMGALITY [Suspect]
     Active Substance: GALCANEZUMAB-GNLM
     Indication: MIGRAINE
     Dosage: 240 MG, DAILY
     Route: 065
     Dates: start: 20210412

REACTIONS (7)
  - Anxiety [Unknown]
  - Dyspnoea [Unknown]
  - Panic attack [Unknown]
  - Inappropriate schedule of product administration [Unknown]
  - Overdose [Unknown]
  - Suicidal ideation [Unknown]
  - Insomnia [Unknown]

NARRATIVE: CASE EVENT DATE: 2021
